FAERS Safety Report 8455435-7 (Version None)
Quarter: 2012Q2

REPORT INFORMATION
  Report Type: 
  Country: None (occurrence: None)
  Receive Date: 20120621
  Receipt Date: 20120612
  Transmission Date: 20120825
  Serious: Yes (Other)
  Sender: FDA-Public Use
  Company Number: DE-JNJFOC-20120607167

PATIENT

DRUGS (11)
  1. CYTARABINE [Suspect]
     Dosage: DAY 42-56 (0.5G/M2), CONSOLIDATION PHASE
     Route: 037
  2. ETOPOSIDE [Suspect]
     Indication: ACUTE MYELOID LEUKAEMIA
     Dosage: INDUCTION 1; DAY 1
     Route: 037
  3. IDARUBICIN HCL [Suspect]
     Dosage: INDUCTION 1; DAY 1
     Route: 037
  4. CYTARABINE [Suspect]
     Indication: ACUTE MYELOID LEUKAEMIA
     Dosage: DAY 88: HIGH DOSE CYTARABINE (1G/M2); INTENSIFICATION DOSE
     Route: 037
  5. CYTARABINE [Suspect]
     Dosage: INDUCTION 2; HIGH DOSE 3 G/M2; DAYS 21-28
     Route: 037
  6. CLADRIBINE [Suspect]
     Indication: ACUTE MYELOID LEUKAEMIA
     Dosage: BETWEEN DAYS 42-56; CONSOLIDATION PHASE
     Route: 042
  7. CYTARABINE [Suspect]
     Dosage: MAINTENANCE 1 YEAR, APPROXIMATELY DAY 140
     Route: 037
  8. MITOXANTRONE [Suspect]
     Dosage: INTENSIFICATION PHASE
     Route: 037
  9. IDARUBICIN HCL [Suspect]
     Indication: ACUTE MYELOID LEUKAEMIA
     Dosage: DAY 42-56; CONSOLIDATION PHASE
     Route: 037
  10. CYTARABINE [Suspect]
     Dosage: INDUCTION 1; DAY 1
     Route: 037
  11. MITOXANTRONE [Suspect]
     Indication: ACUTE MYELOID LEUKAEMIA
     Dosage: INDUCTION 2; DAY 21-28
     Route: 037

REACTIONS (1)
  - T-CELL TYPE ACUTE LEUKAEMIA [None]
